FAERS Safety Report 16522646 (Version 1)
Quarter: 2019Q3

REPORT INFORMATION
  Report Type: Spontaneous
  Country: CN (occurrence: CN)
  Receive Date: 20190702
  Receipt Date: 20190702
  Transmission Date: 20191004
  Serious: Yes (Other)
  Sender: FDA-Public Use
  Company Number: CN-GLAXOSMITHKLINE-CN2019APC092500

PATIENT

DRUGS (1)
  1. SERETIDE [Suspect]
     Active Substance: FLUTICASONE PROPIONATE\SALMETEROL XINAFOATE
     Indication: ASTHMA
     Dosage: 1 PUFF(S), BID (50/500 UG)
     Route: 055
     Dates: start: 2009, end: 201903

REACTIONS (5)
  - Headache [Not Recovered/Not Resolved]
  - Tremor [Recovered/Resolved]
  - Lung infection [Recovered/Resolved]
  - Chronic obstructive pulmonary disease [Recovered/Resolved]
  - Off label use [Recovered/Resolved]
